FAERS Safety Report 7721628-7 (Version None)
Quarter: 2011Q3

REPORT INFORMATION
  Report Type: 
  Country: None (occurrence: None)
  Receive Date: 20110831
  Receipt Date: 20110819
  Transmission Date: 20111222
  Serious: Yes (Hospitalization)
  Sender: FDA-Public Use
  Company Number: US-GLAXOSMITHKLINE-A0746677A

PATIENT
  Age: 67 Year
  Sex: Male
  Weight: 85.9 kg

DRUGS (9)
  1. GLUCOTROL [Concomitant]
     Dates: start: 20050101, end: 20060101
  2. AVANDIA [Suspect]
     Indication: TYPE 2 DIABETES MELLITUS
     Dosage: 4MG TWICE PER DAY
     Route: 048
     Dates: start: 20050101, end: 20070112
  3. AVANDAMET [Suspect]
     Indication: DIABETES MELLITUS
     Route: 048
     Dates: end: 20070101
  4. GLUCOPHAGE [Concomitant]
     Dates: start: 20050101
  5. ENALAPRIL MALEATE [Concomitant]
  6. LIPITOR [Concomitant]
  7. COREG [Concomitant]
     Dates: start: 20061101
  8. AMARYL [Concomitant]
     Dates: start: 20050101, end: 20080101
  9. METFORMIN [Concomitant]
     Dates: start: 20050101

REACTIONS (3)
  - MACULAR OEDEMA [None]
  - CEREBROVASCULAR ACCIDENT [None]
  - MYOCARDIAL INFARCTION [None]
